FAERS Safety Report 6538559-0 (Version None)
Quarter: 2010Q1

REPORT INFORMATION
  Report Type: 
  Country: None (occurrence: None)
  Receive Date: 20100113
  Receipt Date: 20100113
  Transmission Date: 20100710
  Serious: Yes (Death, Hospitalization)
  Sender: FDA-Public Use
  Company Number: None

PATIENT
  Age: 34 Year
  Sex: Female
  Weight: 115 kg

DRUGS (1)
  1. INTERFERON-BETA [Suspect]
     Indication: MULTIPLE SCLEROSIS

REACTIONS (5)
  - ABDOMINAL PAIN [None]
  - ASCITES [None]
  - COAGULOPATHY [None]
  - HEPATIC FAILURE [None]
  - MENTAL STATUS CHANGES [None]
